FAERS Safety Report 8962348 (Version 1)
Quarter: 2012Q4

REPORT INFORMATION
  Report Type: Spontaneous
  Country: US (occurrence: None)
  Receive Date: 20121211
  Receipt Date: 20121211
  Transmission Date: 20130627
  Serious: Yes (Life-Threatening, Hospitalization, Disabling, Other)
  Sender: FDA-Public Use
  Company Number: None

PATIENT
  Age: 58 Year
  Sex: Male
  Weight: 81.65 kg

DRUGS (2)
  1. ANDROGEL [Suspect]
     Indication: TESTOSTERONE LOW
     Dosage: 5 MG  1 per day skin
     Dates: start: 2009, end: 2010
  2. ANDROGEL [Suspect]
     Dosage: 2.5 MG.  1/day  skin as Directed

REACTIONS (1)
  - Prostate cancer [None]
